FAERS Safety Report 12484998 (Version 2)
Quarter: 2016Q4

REPORT INFORMATION
  Report Type: Spontaneous
  Country: US (occurrence: US)
  Receive Date: 20160621
  Receipt Date: 20161117
  Transmission Date: 20170207
  Serious: No
  Sender: FDA-Public Use
  Company Number: US-GLAXOSMITHKLINE-US2016086927

PATIENT
  Sex: Male

DRUGS (1)
  1. VOLTAREN [Suspect]
     Active Substance: DICLOFENAC SODIUM
     Indication: GROIN PAIN
     Dosage: UNK, A LITTLE ON THE FINGER
     Route: 061
     Dates: start: 201605

REACTIONS (5)
  - Drug effect incomplete [Unknown]
  - Wrong technique in product usage process [Unknown]
  - Arthralgia [Not Recovered/Not Resolved]
  - Product use issue [Unknown]
  - Drug administered at inappropriate site [Unknown]
